FAERS Safety Report 12929175 (Version 2)
Quarter: 2016Q4

REPORT INFORMATION
  Report Type: Spontaneous
  Country: GB (occurrence: GB)
  Receive Date: 20161110
  Receipt Date: 20161208
  Transmission Date: 20170207
  Serious: Yes (Hospitalization)
  Sender: FDA-Public Use
  Company Number: GB-PFIZER INC-2016514997

PATIENT
  Age: 34 Year
  Sex: Male

DRUGS (1)
  1. FENTANYL. [Suspect]
     Active Substance: FENTANYL
     Dosage: UNK

REACTIONS (3)
  - Toxicity to various agents [Unknown]
  - Drug abuse [Unknown]
  - Pneumonitis chemical [Recovering/Resolving]
